FAERS Safety Report 4958548-7 (Version None)
Quarter: 2006Q1

REPORT INFORMATION
  Report Type: 
  Country: None (occurrence: None)
  Receive Date: 20060201
  Receipt Date: 20051203
  Transmission Date: 20060701
  Serious: No
  Sender: FDA-Public Use
  Company Number: 2005PV005327

PATIENT
  Age: 64 Year
  Sex: Male
  Weight: 158.3054 kg

DRUGS (9)
  1. BYETTA INJETION (0.25 MG/ML) [Suspect]
     Indication: DIABETES MELLITUS NON-INSULIN-DEPENDENT
     Dosage: MCG; BID; SC
     Route: 058
     Dates: start: 20050901
  2. ZYLOPRIUM [Concomitant]
  3. CADUET [Concomitant]
  4. DIOVAN [Concomitant]
  5. LASIX [Concomitant]
  6. K-DUR 10 [Concomitant]
  7. ASPIRIN [Concomitant]
  8. ACTOS [Concomitant]
  9. AMARYL [Concomitant]

REACTIONS (3)
  - BLOOD GLUCOSE INCREASED [None]
  - INJECTION SITE BRUISING [None]
  - STRESS [None]
